FAERS Safety Report 18826399 (Version 1)
Quarter: 2021Q1

REPORT INFORMATION
  Report Type: Spontaneous
  Country: GB (occurrence: GB)
  Receive Date: 20210202
  Receipt Date: 20210202
  Transmission Date: 20210419
  Serious: Yes (Other)
  Sender: FDA-Public Use
  Company Number: GB-TEVA-2021-GB-1872541

PATIENT
  Sex: Female

DRUGS (2)
  1. FLUTICASONE. [Suspect]
     Active Substance: FLUTICASONE
     Indication: SEASONAL ALLERGY
     Dosage: 50 UG, 150 DOSE
     Route: 055
  2. SIRDUPLA [Suspect]
     Active Substance: FLUTICASONE PROPIONATE\SALMETEROL XINAFOATE
     Indication: ASTHMA
     Dosage: UNK

REACTIONS (7)
  - Drug ineffective [Unknown]
  - Intestinal obstruction [Unknown]
  - Hernia [Unknown]
  - Rhinorrhoea [Recovering/Resolving]
  - Aphonia [Unknown]
  - Product complaint [Unknown]
  - Anxiety [Unknown]
